FAERS Safety Report 20546830 (Version 1)
Quarter: 2022Q1

REPORT INFORMATION
  Report Type: Spontaneous
  Country: MX (occurrence: MX)
  Receive Date: 20220303
  Receipt Date: 20220303
  Transmission Date: 20220424
  Serious: Yes (Death)
  Sender: FDA-Public Use
  Company Number: MX-PFIZER INC-202200332536

PATIENT
  Sex: Male

DRUGS (1)
  1. AXITINIB [Suspect]
     Active Substance: AXITINIB
     Dosage: UNK, CYCLIC (3 CYCLES)

REACTIONS (4)
  - Death [Fatal]
  - Product supply issue [Fatal]
  - Product dose omission issue [Fatal]
  - Dyspnoea [Unknown]
